FAERS Safety Report 11268979 (Version 1)
Quarter: 2015Q3

REPORT INFORMATION
  Report Type: Spontaneous
  Country: US (occurrence: US)
  Receive Date: 20150714
  Receipt Date: 20150714
  Transmission Date: 20151125
  Serious: No
  Sender: FDA-Public Use
  Company Number: PHEH2014US014376

PATIENT
  Sex: Female

DRUGS (5)
  1. DIOVAN HCT [Suspect]
     Active Substance: HYDROCHLOROTHIAZIDE\VALSARTAN
     Dosage: UNK UNK
  2. DIOVAN [Suspect]
     Active Substance: VALSARTAN
     Dosage: 80 MG, QD
  3. SIMVASTATIN. [Concomitant]
     Active Substance: SIMVASTATIN
     Dosage: UNK UKN, UNK
  4. SYNTHROID [Concomitant]
     Active Substance: LEVOTHYROXINE SODIUM
     Dosage: UNK UKN, UNK
  5. ZETIA [Concomitant]
     Active Substance: EZETIMIBE
     Dosage: UNK UKN, UNK

REACTIONS (1)
  - Blood pressure decreased [Unknown]
